FAERS Safety Report 9668246 (Version 2)
Quarter: 2014Q1

REPORT INFORMATION
  Report Type: Report from Study
  Country: JP (occurrence: JP)
  Receive Date: 20131104
  Receipt Date: 20140124
  Transmission Date: 20141002
  Serious: Yes (Hospitalization)
  Sender: FDA-Public Use
  Company Number: JP-TAKEDA-2013TJP002401

PATIENT
  Age: 74 Year
  Sex: Female
  Weight: 39 kg

DRUGS (10)
  1. LANSOPRAZOLE [Suspect]
     Indication: PROPHYLAXIS AGAINST GASTROINTESTINAL ULCER
     Dosage: 15 MG, QD
     Route: 048
     Dates: start: 20110409
  2. BAYASPIRIN [Concomitant]
     Indication: THROMBOSIS PROPHYLAXIS
     Dosage: 100 MG, 1 DAYS, }=3 M BEFORE START OF TAKEPRON
     Route: 048
  3. ADALAT [Concomitant]
     Dosage: 40 MG, 1 DAYS, BEFORE START OF TAKEPRON
     Route: 048
  4. CIBENOL [Concomitant]
     Dosage: 200 MG, 1 DAYS, BEFORE START OF TAKEPRON
     Route: 048
  5. LASIX                              /00032601/ [Concomitant]
     Dosage: 20 MG, 1 DAYS, BEFORE START OF TAKEPRON
     Route: 048
  6. LIVALO [Concomitant]
     Indication: HYPERCHOLESTEROLAEMIA
     Dosage: 2 MG, 1 DAYS
     Route: 048
     Dates: start: 20110408
  7. WARFARIN POTASSIUM [Concomitant]
     Indication: ANGINA PECTORIS
     Dosage: 1 MG ON ODD DAYS AND 2 MG ON EVEN DAYS
     Route: 048
     Dates: start: 20110204
  8. WARFARIN [Concomitant]
     Indication: ANGINA PECTORIS
     Dosage: 0.5 MG, 1 DAYS
     Route: 048
     Dates: start: 20110204
  9. METHYCOBAL [Concomitant]
     Indication: NEUROPATHY PERIPHERAL
     Dosage: 1500 ?G, 1 DAYS, BEFORE START OF TAKEPRON
     Route: 048
  10. PURSENNID                          /00571902/ [Concomitant]
     Indication: CONSTIPATION
     Dosage: 24 MG, 1 DAYS
     Route: 048

REACTIONS (1)
  - Gastric polyps [Recovering/Resolving]
